FAERS Safety Report 10154956 (Version 1)
Quarter: 2014Q2

REPORT INFORMATION
  Report Type: Spontaneous
  Country: US (occurrence: US)
  Receive Date: 20140506
  Receipt Date: 20140506
  Transmission Date: 20141212
  Serious: No
  Sender: FDA-Public Use
  Company Number: US-BAYER-2014-066384

PATIENT
  Age: 50 Year
  Sex: Female

DRUGS (1)
  1. ALEVE GELCAPS [Suspect]
     Indication: ANALGESIC THERAPY
     Dosage: 2-3 DF, PRN
     Route: 048
     Dates: start: 2011

REACTIONS (2)
  - Drug ineffective [None]
  - Inappropriate schedule of drug administration [None]
